FAERS Safety Report 11833224 (Version 2)
Quarter: 2015Q4

REPORT INFORMATION
  Report Type: Report from Study
  Country: BR (occurrence: BR)
  Receive Date: 20151214
  Receipt Date: 20151215
  Transmission Date: 20160305
  Serious: Yes (Death, Hospitalization)
  Sender: FDA-Public Use
  Company Number: BR-ABBVIE-15K-020-1518274-00

PATIENT
  Sex: Female

DRUGS (1)
  1. HUMIRA [Suspect]
     Active Substance: ADALIMUMAB
     Indication: RHEUMATOID ARTHRITIS
     Route: 058
     Dates: start: 20150815, end: 201509

REACTIONS (8)
  - Asthenia [Unknown]
  - Pain [Recovering/Resolving]
  - Decreased appetite [Unknown]
  - Multi-organ failure [Fatal]
  - Condition aggravated [Unknown]
  - Cardiac arrest [Unknown]
  - Respiratory disorder [Unknown]
  - Diarrhoea [Unknown]

NARRATIVE: CASE EVENT DATE: 2015
